FAERS Safety Report 17033073 (Version 2)
Quarter: 2020Q1

REPORT INFORMATION
  Report Type: Spontaneous
  Country: US (occurrence: US)
  Receive Date: 20191114
  Receipt Date: 20200212
  Transmission Date: 20200409
  Serious: Yes (Other)
  Sender: FDA-Public Use
  Company Number: US-009507513-1911USA004267

PATIENT
  Sex: Female

DRUGS (2)
  1. NEURONTIN [Concomitant]
     Active Substance: GABAPENTIN
     Dosage: UNK
  2. KEYTRUDA [Suspect]
     Active Substance: PEMBROLIZUMAB
     Dosage: UNK
     Route: 042

REACTIONS (1)
  - Neuropathy peripheral [Unknown]
